FAERS Safety Report 7044791-2 (Version None)
Quarter: 2010Q4

REPORT INFORMATION
  Report Type: 
  Country: None (occurrence: None)
  Receive Date: 20101014
  Receipt Date: 20100930
  Transmission Date: 20110411
  Serious: Yes (Other)
  Sender: FDA-Public Use
  Company Number: PHHY2010US65441

PATIENT
  Sex: Male

DRUGS (4)
  1. TEKTURNA [Suspect]
     Dosage: 300 MG
  2. TEKTURNA HCT [Suspect]
  3. COREG [Concomitant]
  4. ELAVIL [Concomitant]

REACTIONS (3)
  - ARTHRALGIA [None]
  - ARTHRITIS [None]
  - MYALGIA [None]
